FAERS Safety Report 7707669-4 (Version None)
Quarter: 2011Q3

REPORT INFORMATION
  Report Type: 
  Country: None (occurrence: None)
  Receive Date: 20110824
  Receipt Date: 20110817
  Transmission Date: 20111222
  Serious: Yes (Other)
  Sender: FDA-Public Use
  Company Number: PHHY2011ES74267

PATIENT
  Age: 12 Year
  Sex: Female

DRUGS (1)
  1. METHIMAZOLE [Suspect]
     Dosage: 0.7 MG/KG, UNK

REACTIONS (3)
  - ARTHRITIS [None]
  - ARTHRALGIA [None]
  - JOINT EFFUSION [None]
